FAERS Safety Report 16864608 (Version 2)
Quarter: 2020Q1

REPORT INFORMATION
  Report Type: Spontaneous
  Country: US (occurrence: US)
  Receive Date: 20190928
  Receipt Date: 20200219
  Transmission Date: 20200409
  Serious: No
  Sender: FDA-Public Use
  Company Number: US-TEVA-2019-US-1115105

PATIENT
  Sex: Female

DRUGS (5)
  1. DEXTROAMPHET SACCHARAT, AMPHET ASPARTATE, DEXTROAMPHET SULFATE AND AMPHET SULFAT [Concomitant]
     Active Substance: AMPHETAMINE ASPARTATE\AMPHETAMINE SULFATE\DEXTROAMPHETAMINE SACCHARATE\DEXTROAMPHETAMINE SULFATE
  2. COPAXONE [Suspect]
     Active Substance: GLATIRAMER ACETATE
     Indication: MULTIPLE SCLEROSIS
     Dosage: SYRINGE
     Route: 058
     Dates: start: 20181030
  3. COPAXONE [Suspect]
     Active Substance: GLATIRAMER ACETATE
     Dosage: SYRINGE
     Route: 058
     Dates: start: 20181030
  4. TECFIDERA [Concomitant]
     Active Substance: DIMETHYL FUMARATE
  5. WAL-ITIN [Concomitant]
     Active Substance: LORATADINE

REACTIONS (2)
  - Movement disorder [Not Recovered/Not Resolved]
  - Fall [Unknown]
